FAERS Safety Report 4600312-2 (Version None)
Quarter: 2005Q1

REPORT INFORMATION
  Report Type: 
  Country: None (occurrence: None)
  Receive Date: 20050303
  Receipt Date: 20050303
  Transmission Date: 20050727
  Serious: Yes (Other)
  Sender: FDA-Public Use
  Company Number: None

PATIENT
  Sex: Male
  Weight: 49.8957 kg

DRUGS (1)
  1. LIBRAX [Suspect]
     Indication: IRRITABLE BOWEL SYNDROME
     Dosage: ONE CAPSULE BID PRN ORAL
     Route: 048
     Dates: start: 20050220, end: 20050223

REACTIONS (5)
  - ABDOMINAL DISTENSION [None]
  - MUCOSAL DRYNESS [None]
  - NERVOUSNESS [None]
  - PHARMACEUTICAL PRODUCT COMPLAINT [None]
  - TREMOR [None]
